FAERS Safety Report 7423380-1 (Version None)
Quarter: 2011Q2

REPORT INFORMATION
  Report Type: 
  Country: None (occurrence: None)
  Receive Date: 20110419
  Receipt Date: 20110406
  Transmission Date: 20111010
  Serious: Yes (Hospitalization)
  Sender: FDA-Public Use
  Company Number: PHHY2011NL29281

PATIENT
  Sex: Male

DRUGS (16)
  1. PANTOPRAZOLE [Concomitant]
     Dosage: 40 MG, BID
  2. CALCICHEW D3 [Concomitant]
     Dosage: 50 MG, QD
  3. SIMVASTATIN [Concomitant]
     Dosage: 40 MG, QD
  4. ZOMETA [Suspect]
     Indication: PROSTATE CANCER METASTATIC
     Dosage: 4 MG, QMO
     Route: 042
     Dates: start: 20100409
  5. INSULIN [Concomitant]
  6. DOMPERIDONE [Concomitant]
     Dosage: 600 MG, BID
  7. METOCLOPRAMIDE [Concomitant]
     Dosage: 10 MG, QID
  8. BETAHISTINE [Concomitant]
     Dosage: 16 MG, BID
  9. OXAZEPAM [Concomitant]
     Dosage: 10 MG,
  10. PREDNISONE [Concomitant]
     Dosage: 10 MG, BID
  11. OXINORM [Concomitant]
     Dosage: 10 MG, QID
  12. METFORMIN [Concomitant]
     Dosage: 1000 MG, BID
  13. FENTANYL [Concomitant]
     Dosage: 75 MG, ONCE EVERY 3 DAYS
  14. ZOMETA [Suspect]
     Dosage: 4 MG, QMO
     Route: 042
     Dates: start: 20110308
  15. ZOMETA [Suspect]
     Dosage: 4 MG, QMO
     Route: 042
     Dates: start: 20110406
  16. DICLOFENAC [Concomitant]
     Dosage: 50 MG, TID

REACTIONS (7)
  - VOMITING [None]
  - EATING DISORDER [None]
  - GASTRITIS [None]
  - DYSPHAGIA [None]
  - DEHYDRATION [None]
  - DUODENITIS [None]
  - GROIN PAIN [None]
